FAERS Safety Report 9185899 (Version 2)
Quarter: 2013Q2

REPORT INFORMATION
  Report Type: Report from Study
  Country: DE (occurrence: DE)
  Receive Date: 20130325
  Receipt Date: 20130417
  Transmission Date: 20140414
  Serious: Yes (Death)
  Sender: FDA-Public Use
  Company Number: DE-ABBOTT-13P-062-1067570-00

PATIENT
  Age: 57 Year
  Sex: Male

DRUGS (1)
  1. TRENANTONE [Suspect]
     Indication: PROSTATE CANCER
     Route: 058
     Dates: start: 20120727, end: 20130124

REACTIONS (1)
  - Hepatic failure [Fatal]
